FAERS Safety Report 15061182 (Version 1)
Quarter: 2018Q2

REPORT INFORMATION
  Report Type: Spontaneous
  Country: US (occurrence: US)
  Receive Date: 20180625
  Receipt Date: 20180625
  Transmission Date: 20180711
  Serious: No
  Sender: FDA-Public Use
  Company Number: US-ROCHE-1944562

PATIENT

DRUGS (1)
  1. XELODA [Suspect]
     Active Substance: CAPECITABINE
     Indication: PRODUCT USED FOR UNKNOWN INDICATION
     Route: 065
     Dates: start: 201604, end: 20170402

REACTIONS (5)
  - Tumour marker increased [Unknown]
  - Dry skin [Unknown]
  - Ill-defined disorder [Unknown]
  - Skin hypertrophy [Unknown]
  - Skin exfoliation [Unknown]
